FAERS Safety Report 7735903-3 (Version None)
Quarter: 2011Q3

REPORT INFORMATION
  Report Type: 
  Country: None (occurrence: None)
  Receive Date: 20110908
  Receipt Date: 20090427
  Transmission Date: 20111222
  Serious: No
  Sender: FDA-Public Use
  Company Number: 2009BI012962

PATIENT
  Age: 51 Year
  Sex: Male

DRUGS (1)
  1. TYSABRI [Suspect]
     Indication: MULTIPLE SCLEROSIS
     Route: 042
     Dates: start: 20090127

REACTIONS (9)
  - GAIT DISTURBANCE [None]
  - BLADDER DISORDER [None]
  - OEDEMA PERIPHERAL [None]
  - DIPLOPIA [None]
  - KIDNEY ENLARGEMENT [None]
  - FATIGUE [None]
  - VISUAL IMPAIRMENT [None]
  - FALL [None]
  - MUSCULOSKELETAL STIFFNESS [None]
